FAERS Safety Report 7073021-0 (Version None)
Quarter: 2010Q4

REPORT INFORMATION
  Report Type: 
  Country: None (occurrence: None)
  Receive Date: 20101029
  Receipt Date: 20100426
  Transmission Date: 20110411
  Serious: No
  Sender: FDA-Public Use
  Company Number: A0854611A

PATIENT
  Age: 80 Year
  Sex: Male

DRUGS (4)
  1. ADVAIR DISKUS 100/50 [Suspect]
     Dosage: 1PUFF TWICE PER DAY
     Route: 055
     Dates: start: 20090101
  2. ASPIRIN [Concomitant]
  3. LEVOTHYROXINE [Concomitant]
  4. METOPROLOL [Concomitant]

REACTIONS (2)
  - HERPES ZOSTER [None]
  - RASH [None]
